FAERS Safety Report 21379450 (Version 1)
Quarter: 2022Q3

REPORT INFORMATION
  Report Type: Spontaneous
  Country: US (occurrence: US)
  Receive Date: 20220927
  Receipt Date: 20220927
  Transmission Date: 20221027
  Serious: Yes (Other)
  Sender: FDA-Public Use
  Company Number: US-ABBVIE-4130480

PATIENT
  Sex: Male

DRUGS (1)
  1. VENCLEXTA [Suspect]
     Active Substance: VENETOCLAX
     Indication: Non-Hodgkin^s lymphoma
     Dates: start: 20200818, end: 20210105

REACTIONS (4)
  - Atrial fibrillation [Unknown]
  - Off label use [Unknown]
  - Dementia [Unknown]
  - Asthenia [Unknown]
